FAERS Safety Report 14138347 (Version 1)
Quarter: 2017Q4

REPORT INFORMATION
  Report Type: Spontaneous
  Country: US (occurrence: US)
  Receive Date: 20171027
  Receipt Date: 20171027
  Transmission Date: 20180321
  Serious: No
  Sender: FDA-Public Use
  Company Number: US-ROCHE-1874673

PATIENT
  Sex: Female
  Weight: 65.38 kg

DRUGS (1)
  1. TAMIFLU [Suspect]
     Active Substance: OSELTAMIVIR PHOSPHATE
     Indication: INFLUENZA
     Route: 048
     Dates: start: 20161227, end: 20161227

REACTIONS (4)
  - Body temperature increased [Recovered/Resolved]
  - Abdominal pain upper [Recovered/Resolved]
  - Hypersensitivity [Unknown]
  - Vomiting [Recovered/Resolved]

NARRATIVE: CASE EVENT DATE: 20161227
